FAERS Safety Report 5396637-6 (Version None)
Quarter: 2007Q3

REPORT INFORMATION
  Report Type: 
  Country: None (occurrence: None)
  Receive Date: 20070725
  Receipt Date: 20070718
  Transmission Date: 20080115
  Serious: Yes (Hospitalization)
  Sender: FDA-Public Use
  Company Number: A0664862A

PATIENT
  Age: 36 Year
  Sex: Male

DRUGS (6)
  1. EPIVIR-HBV [Suspect]
     Dosage: 100MG PER DAY
     Route: 048
     Dates: start: 20040504
  2. PROGRAF [Concomitant]
  3. URSODIOL [Concomitant]
  4. COUMADIN [Concomitant]
  5. SYNTHROID [Concomitant]
  6. METOPROLOL SUCCINATE [Concomitant]

REACTIONS (6)
  - ASTHENIA [None]
  - COLLAPSE OF LUNG [None]
  - HEPATITIS B [None]
  - LIVER TRANSPLANT REJECTION [None]
  - RENAL FAILURE [None]
  - TREATMENT NONCOMPLIANCE [None]
